FAERS Safety Report 9506197 (Version 1)
Quarter: 2013Q1

REPORT INFORMATION
  Report Type: Spontaneous
  Country: US (occurrence: None)
  Receive Date: 20130301
  Receipt Date: 20130301
  Transmission Date: 20140127
  Serious: Yes (Hospitalization, Other)
  Sender: FDA-Public Use
  Company Number: RB-45953-2012

PATIENT
  Sex: Female

DRUGS (2)
  1. SUBOXONE [Suspect]
     Indication: DRUG DEPENDENCE
     Dosage: ONE DOSE SUBLINGUAL
     Dates: start: 2007, end: 2007
  2. EPIPEN [Concomitant]

REACTIONS (6)
  - Drug hypersensitivity [None]
  - Swelling [None]
  - Pharyngeal oedema [None]
  - Urticaria [None]
  - Convulsion [None]
  - Dyspnoea [None]
